FAERS Safety Report 5852580-7 (Version None)
Quarter: 2008Q3

REPORT INFORMATION
  Report Type: 
  Country: None (occurrence: None)
  Receive Date: 20080819
  Receipt Date: 20080806
  Transmission Date: 20090109
  Serious: Yes (Death, Hospitalization, Other)
  Sender: FDA-Public Use
  Company Number: 51328

PATIENT
  Age: 81 Year
  Sex: Female

DRUGS (1)
  1. AZATHIOPRINE SODIUM [Suspect]
     Indication: PYREXIA
     Dosage: 59MG

REACTIONS (2)
  - HODGKIN'S DISEASE [None]
  - PNEUMOCYSTIS JIROVECI PNEUMONIA [None]
